FAERS Safety Report 10157681 (Version 2)
Quarter: 2014Q2

REPORT INFORMATION
  Report Type: Spontaneous
  Country: JP (occurrence: JP)
  Receive Date: 20140507
  Receipt Date: 20140627
  Transmission Date: 20141212
  Serious: Yes (Other)
  Sender: FDA-Public Use
  Company Number: JP-ASTRAZENECA-2014SE28881

PATIENT
  Age: 82 Year
  Sex: Female
  Weight: 50 kg

DRUGS (10)
  1. XYLOCAINE POLYAMP [Suspect]
     Route: 065
     Dates: start: 20140314, end: 20140314
  2. MEDROL [Concomitant]
     Dosage: DOSE UNKNOWN
     Route: 048
     Dates: start: 20140313
  3. POLARAMINE [Concomitant]
     Dosage: DOSE UNKNOWN
     Route: 048
     Dates: start: 20140314
  4. LIPITOR [Concomitant]
     Dosage: DOSE UNKNOWN
     Route: 048
  5. MICARDIS [Concomitant]
     Dosage: DOSE UNKNOWN
     Route: 048
  6. PLAVIX [Concomitant]
     Dosage: DOSE UNKNOWN
     Route: 048
  7. MAINTATE [Concomitant]
     Dosage: DOSE UNKNOWN
     Route: 048
  8. FLUTIDE:DISKUS [Concomitant]
     Dosage: DOSE UNKNOWN
     Route: 055
  9. CEFAMEZIN ALPHA [Concomitant]
     Dosage: DOSE UNKNOWN
     Route: 065
  10. VEEN-F [Concomitant]
     Dosage: DOSE UNKNOWN
     Route: 041

REACTIONS (3)
  - Hypoxic-ischaemic encephalopathy [Not Recovered/Not Resolved]
  - Status asthmaticus [Not Recovered/Not Resolved]
  - Anaphylactic reaction [Not Recovered/Not Resolved]
